FAERS Safety Report 4462323-X (Version None)
Quarter: 2004Q3

REPORT INFORMATION
  Report Type: 
  Country: None (occurrence: None)
  Receive Date: 20040924
  Receipt Date: 20040910
  Transmission Date: 20050211
  Serious: Yes (Death)
  Sender: FDA-Public Use
  Company Number: 208986

PATIENT
  Age: 82 Year
  Sex: Male

DRUGS (4)
  1. PULMOZYME [Suspect]
     Indication: SPUTUM ABNORMAL
     Dosage: RESPIRATORY
     Route: 057
  2. PREDNISONE [Concomitant]
  3. OXYGEN (OXYGEN) [Concomitant]
  4. MUCOMYST [Concomitant]

REACTIONS (1)
  - DEATH [None]
